FAERS Safety Report 18697007 (Version 2)
Quarter: 2021Q1

REPORT INFORMATION
  Report Type: Report from Study
  Country: CA (occurrence: CA)
  Receive Date: 20210104
  Receipt Date: 20210218
  Transmission Date: 20210419
  Serious: Yes (Hospitalization)
  Sender: FDA-Public Use
  Company Number: CA-PFIZER INC-2020519894

PATIENT
  Sex: Female

DRUGS (12)
  1. DESOXIMETASONE. [Concomitant]
     Active Substance: DESOXIMETASONE
     Route: 058
  2. DICLOFENAC [Concomitant]
     Active Substance: DICLOFENAC
     Dosage: SOLUTION OPHTHALMIC
     Route: 065
  3. NAPROXEN. [Concomitant]
     Active Substance: NAPROXEN
     Route: 065
  4. CODEINE [Concomitant]
     Active Substance: CODEINE
     Route: 065
  5. METHOTREXATE SODIUM. [Suspect]
     Active Substance: METHOTREXATE SODIUM
  6. METHOTREXATE SODIUM. [Suspect]
     Active Substance: METHOTREXATE SODIUM
     Dosage: 25 MG
  7. SULFASALAZINE. [Suspect]
     Active Substance: SULFASALAZINE
  8. LEFLUNOMIDE. [Suspect]
     Active Substance: LEFLUNOMIDE
  9. IBUPROFEN. [Concomitant]
     Active Substance: IBUPROFEN
     Route: 065
  10. PREDNISONE. [Concomitant]
     Active Substance: PREDNISONE
     Route: 065
  11. CELEBREX [Concomitant]
     Active Substance: CELECOXIB
     Route: 065
  12. CICLOSPORIN [Concomitant]
     Active Substance: CYCLOSPORINE
     Route: 065

REACTIONS (7)
  - Drug intolerance [Unknown]
  - Abdominal discomfort [Unknown]
  - Arthralgia [Unknown]
  - Alopecia [Unknown]
  - Depression [Unknown]
  - Drug ineffective [Unknown]
  - Nausea [Unknown]
